FAERS Safety Report 15430601 (Version 6)
Quarter: 2020Q3

REPORT INFORMATION
  Report Type: Report from Study
  Country: ES (occurrence: ES)
  Receive Date: 20180926
  Receipt Date: 20190702
  Transmission Date: 20201104
  Serious: Yes (Death, Life-Threatening, Hospitalization)
  Sender: FDA-Public Use
  Company Number: ES-JNJFOC-20180926879

PATIENT
  Age: 68 Year
  Sex: Male
  Weight: 109 kg

DRUGS (15)
  1. OMEPRAZOLE. [Concomitant]
     Active Substance: OMEPRAZOLE
     Indication: GASTRITIS PROPHYLAXIS
     Route: 048
     Dates: end: 20180914
  2. PREGABALIN. [Concomitant]
     Active Substance: PREGABALIN
     Indication: NEUROTOXICITY
     Route: 048
     Dates: start: 20180622
  3. PACLITAXEL. [Suspect]
     Active Substance: PACLITAXEL
     Indication: TRANSITIONAL CELL CARCINOMA
     Dosage: 195 MG, Q WEEKLY
     Route: 048
     Dates: start: 20180323
  4. PARACETAMOL [Concomitant]
     Active Substance: ACETAMINOPHEN
     Indication: PAIN IN EXTREMITY
     Route: 048
     Dates: start: 201803
  5. ENALAPRIL [Concomitant]
     Active Substance: ENALAPRIL
     Indication: HYPERTENSION
     Route: 048
     Dates: start: 20180518
  6. HIDROFEROL [Concomitant]
     Active Substance: CALCIFEDIOL
     Indication: PROPHYLAXIS
     Dosage: 0.266 MG, Q MONTHLY
     Route: 048
     Dates: start: 20170705
  7. BISOPROLOL [Concomitant]
     Active Substance: BISOPROLOL
     Indication: HYPERTENSION
     Route: 048
     Dates: start: 201406
  8. PRAVASTATIN. [Concomitant]
     Active Substance: PRAVASTATIN
     Indication: DYSLIPIDAEMIA
     Route: 048
     Dates: start: 201406
  9. FOLIC ACID. [Concomitant]
     Active Substance: FOLIC ACID
     Indication: PROPHYLAXIS
     Route: 048
     Dates: start: 20180622
  10. TINZAPARIN [Concomitant]
     Active Substance: TINZAPARIN
     Indication: THROMBOSIS PROPHYLAXIS
     Route: 058
     Dates: start: 20170213
  11. TARDYFERON [Concomitant]
     Active Substance: FERROUS SULFATE
     Indication: ANAEMIA PROPHYLAXIS
     Route: 048
     Dates: start: 20180706
  12. IBRUTINIB [Suspect]
     Active Substance: IBRUTINIB
     Indication: TRANSITIONAL CELL CARCINOMA
     Dosage: 560 MG, UNK
     Route: 048
     Dates: start: 20180323, end: 20180913
  13. LEVOTHYROXINE. [Concomitant]
     Active Substance: LEVOTHYROXINE
     Indication: HYPOTHYROIDISM
     Route: 048
     Dates: start: 20180621
  14. TRAMADOL. [Concomitant]
     Active Substance: TRAMADOL
     Indication: PAIN IN EXTREMITY
     Route: 048
  15. FENTANYL CITRATE. [Concomitant]
     Active Substance: FENTANYL CITRATE
     Indication: ARTHRALGIA
     Route: 048
     Dates: start: 20180622

REACTIONS (2)
  - Haematuria [Not Recovered/Not Resolved]
  - Transitional cell carcinoma [Fatal]

NARRATIVE: CASE EVENT DATE: 20180914
